APPROVED DRUG PRODUCT: CELECOXIB
Active Ingredient: CELECOXIB
Strength: 400MG
Dosage Form/Route: CAPSULE;ORAL
Application: A207061 | Product #004
Applicant: JUBILANT GENERICS LTD
Approved: Apr 4, 2017 | RLD: No | RS: No | Type: DISCN